FAERS Safety Report 9953107 (Version 1)
Quarter: 2014Q1

REPORT INFORMATION
  Report Type: Report from Study
  Country: US (occurrence: US)
  Receive Date: 20140304
  Receipt Date: 20140304
  Transmission Date: 20141002
  Serious: No
  Sender: FDA-Public Use
  Company Number: US-ABBVIE-13P-163-1072686-00

PATIENT
  Age: 45 Year
  Sex: Female

DRUGS (9)
  1. HUMIRA [Suspect]
     Indication: CROHN^S DISEASE
     Dates: start: 20130223
  2. SAVELLA [Concomitant]
     Indication: FIBROMYALGIA
     Route: 048
  3. METOPROLOL [Concomitant]
     Indication: BLOOD PRESSURE
     Route: 048
  4. AMLODIPINE [Concomitant]
     Indication: BLOOD PRESSURE
     Route: 048
  5. PRILOSEC [Concomitant]
     Indication: GASTRIC ULCER
     Route: 048
  6. LOPERAMIDE [Concomitant]
     Indication: CROHN^S DISEASE
     Route: 048
  7. CLARITIN [Concomitant]
     Indication: HYPERSENSITIVITY
     Route: 048
  8. LORAZEPAM [Concomitant]
     Indication: ANXIETY
     Route: 048
  9. CALCITRATE [Concomitant]
     Indication: MINERAL SUPPLEMENTATION
     Route: 048

REACTIONS (1)
  - Urticaria [Not Recovered/Not Resolved]
